FAERS Safety Report 5155511-0 (Version None)
Quarter: 2006Q4

REPORT INFORMATION
  Report Type: 
  Country: None (occurrence: None)
  Receive Date: 20061114
  Receipt Date: 20061101
  Transmission Date: 20070319
  Serious: Yes (Hospitalization)
  Sender: FDA-Public Use
  Company Number: 2006133357

PATIENT
  Age: 41 Year
  Sex: Male

DRUGS (3)
  1. DILANTIN [Suspect]
  2. REBIF [Suspect]
     Indication: MULTIPLE SCLEROSIS
     Dosage: 44 MCG, 3 IN 1 WK
     Dates: start: 20060803
  3. TAMSULOSIN HCL [Concomitant]

REACTIONS (4)
  - APPENDICITIS [None]
  - COAGULOPATHY [None]
  - DRUG INTERACTION [None]
  - POST PROCEDURAL HAEMORRHAGE [None]
